FAERS Safety Report 22069925 (Version 1)
Quarter: 2023Q1

REPORT INFORMATION
  Report Type: Report from Study
  Country: CA (occurrence: CA)
  Receive Date: 20230307
  Receipt Date: 20230307
  Transmission Date: 20230417
  Serious: Yes (Other)
  Sender: FDA-Public Use
  Company Number: CA-CELLTRION INC.-2023CA004618

PATIENT

DRUGS (1)
  1. TRUXIMA [Suspect]
     Active Substance: RITUXIMAB-ABBS
     Indication: Composite lymphoma
     Dosage: 600 MG IV Q2WEEKS X 8 DOSES (PATIENT^S BSA= 1.6 DOSE: 375 MG/M2)
     Route: 042

REACTIONS (2)
  - Composite lymphoma [Unknown]
  - Off label use [Unknown]
